FAERS Safety Report 9633123 (Version 7)
Quarter: 2015Q2

REPORT INFORMATION
  Report Type: Spontaneous
  Country: BR (occurrence: BR)
  Receive Date: 20131019
  Receipt Date: 20150401
  Transmission Date: 20150821
  Serious: Yes (Other)
  Sender: FDA-Public Use
  Company Number: BR-ROCHE-1291442

PATIENT
  Age: 65 Year
  Sex: Female
  Weight: 90.25 kg

DRUGS (3)
  1. DOXORUBICIN [Suspect]
     Active Substance: DOXORUBICIN
     Indication: OVARIAN CANCER
     Route: 065
  2. AVASTIN [Suspect]
     Active Substance: BEVACIZUMAB
     Indication: OVARIAN CANCER
     Route: 042
     Dates: start: 20120516, end: 20130716
  3. FASLODEX [Concomitant]
     Active Substance: FULVESTRANT
     Indication: OVARIAN CANCER
     Route: 065
     Dates: start: 20131209

REACTIONS (3)
  - Lymphadenopathy [Unknown]
  - Headache [Recovered/Resolved]
  - Disease progression [Not Recovered/Not Resolved]

NARRATIVE: CASE EVENT DATE: 201307
